FAERS Safety Report 19385107 (Version 1)
Quarter: 2021Q2

REPORT INFORMATION
  Report Type: Spontaneous
  Country: US (occurrence: US)
  Receive Date: 20210607
  Receipt Date: 20210607
  Transmission Date: 20210717
  Serious: No
  Sender: FDA-Public Use
  Company Number: US-PERRIGO-20US012761

PATIENT
  Age: 63 Year
  Sex: Male
  Weight: 71.2 kg

DRUGS (4)
  1. MINOXIDIL. [Suspect]
     Active Substance: MINOXIDIL
     Indication: ALOPECIA
     Dosage: 1/2 CAPFUL, BID
     Route: 061
     Dates: start: 202007, end: 20200820
  2. LOVASTATIN. [Suspect]
     Active Substance: LOVASTATIN
     Indication: BLOOD CHOLESTEROL ABNORMAL
     Dosage: 10 MG, NIGHTLY
     Route: 048
     Dates: start: 202007
  3. MINOXIDIL. [Suspect]
     Active Substance: MINOXIDIL
     Dosage: UNKNOWN, NIGHTLY
     Route: 061
     Dates: start: 20200830, end: 20200901
  4. MINOXIDIL. [Suspect]
     Active Substance: MINOXIDIL
     Dosage: 1/2 CAPFUL, NIGHTLY
     Route: 061
     Dates: start: 20200821, end: 20200829

REACTIONS (5)
  - Application site pain [Recovered/Resolved]
  - Inappropriate schedule of product administration [Recovered/Resolved]
  - Dizziness [Recovered/Resolved]
  - Application site paraesthesia [Recovered/Resolved]
  - Wrong technique in product usage process [Recovered/Resolved]

NARRATIVE: CASE EVENT DATE: 202007
